FAERS Safety Report 8214739-3 (Version None)
Quarter: 2012Q1

REPORT INFORMATION
  Report Type: 
  Country: None (occurrence: None)
  Receive Date: 20120316
  Receipt Date: 20120313
  Transmission Date: 20120608
  Serious: Yes (Death, Hospitalization)
  Sender: FDA-Public Use
  Company Number: NL-GENZYME-CLOF-1002017

PATIENT
  Sex: Female
  Weight: 58.8 kg

DRUGS (92)
  1. METHOTREXATE [Suspect]
     Indication: ACUTE LYMPHOCYTIC LEUKAEMIA
     Dosage: 15 MG, QD
     Route: 037
     Dates: start: 20100608, end: 20100608
  2. METHOTREXATE [Suspect]
     Dosage: 775 MG, QD
     Route: 042
     Dates: start: 20100630, end: 20100630
  3. METHOTREXATE [Suspect]
     Dosage: 15 MG, QD ON DAY 7, 14, 21
     Route: 048
     Dates: start: 20110915, end: 20111013
  4. MERCAPTOPURINE [Suspect]
     Dosage: 50 MG, QD, DAYS 0-27
     Route: 048
     Dates: start: 20110818, end: 20110914
  5. DEXAMETHASONE [Suspect]
     Dosage: 4 MG, QD
     Route: 037
     Dates: start: 20100730, end: 20100730
  6. PREDNISONE TAB [Suspect]
     Dosage: 55 MG, QD, DAYS 0-6
     Route: 048
     Dates: start: 20110428, end: 20110525
  7. VINCRISTINE [Suspect]
     Dosage: 1 MG, QD
     Route: 042
     Dates: start: 20100525, end: 20100525
  8. CYTARABINE [Suspect]
     Indication: ACUTE LYMPHOCYTIC LEUKAEMIA
     Dosage: 310 MG, QD
     Route: 042
     Dates: start: 20100620, end: 20100620
  9. EVOLTRA [Suspect]
     Dosage: 33 MG, QDX5
     Route: 042
     Dates: start: 20100720, end: 20100724
  10. METHOTREXATE [Suspect]
     Dosage: 20 MG, QD ON DAY 7, 14, 21
     Route: 048
     Dates: start: 20110818, end: 20110914
  11. MERCAPTOPURINE [Suspect]
     Dosage: 50 MG, QD, DAYS 0-27
     Route: 048
     Dates: start: 20110203, end: 20110302
  12. MERCAPTOPURINE [Suspect]
     Dosage: 100 MG, QD (DAYS 1-28)
     Route: 048
     Dates: start: 20111014, end: 20111120
  13. DOXORUBICIN HCL [Suspect]
     Indication: ACUTE LYMPHOCYTIC LEUKAEMIA
     Dosage: 66 MG, QD
     Route: 042
     Dates: start: 20100525, end: 20100525
  14. PREDNISONE TAB [Suspect]
     Dosage: 60 MG, QD
     Route: 048
     Dates: start: 20100819, end: 20100916
  15. PREDNISONE TAB [Suspect]
     Dosage: 55 MG, QD, DAYS 0-6
     Route: 048
     Dates: start: 20110303, end: 20110330
  16. PREDNISONE TAB [Suspect]
     Dosage: 55 MG, QD, DAYS 0-6
     Route: 048
     Dates: start: 20110331, end: 20110427
  17. VINCRISTINE [Suspect]
     Indication: ACUTE LYMPHOCYTIC LEUKAEMIA
     Dosage: 1 MG, QD
     Route: 042
     Dates: start: 20100518, end: 20100518
  18. VINCRISTINE [Suspect]
     Dosage: 1 MG, QD
     Route: 042
     Dates: start: 20100826, end: 20100826
  19. VINCRISTINE [Suspect]
     Dosage: 2 MG, QD, DAY 1 OF EVERY MONTH
     Route: 042
     Dates: start: 20110106, end: 20110106
  20. VINCRISTINE [Suspect]
     Dosage: 2 MG, QD, DAY 1 OF EVERY MONTH
     Route: 042
     Dates: start: 20110428, end: 20110428
  21. METHOTREXATE [Suspect]
     Dosage: 17.5 MG, QD ON DAY 7, 14, 21
     Route: 048
     Dates: start: 20110303, end: 20110330
  22. METHOTREXATE [Suspect]
     Dosage: 20 MG, QD ON DAY 7, 14, 21
     Route: 048
     Dates: start: 20110721, end: 20110817
  23. MERCAPTOPURINE [Suspect]
     Indication: ACUTE LYMPHOCYTIC LEUKAEMIA
     Dosage: 100 MG, QD, DAYS 0-27
     Route: 048
     Dates: start: 20101111, end: 20101208
  24. MERCAPTOPURINE [Suspect]
     Dosage: 50 MG, QD, DAYS 0-27
     Route: 048
     Dates: start: 20110331, end: 20110427
  25. MERCAPTOPURINE [Suspect]
     Dosage: 50 MG, QD, DAYS 0-27
     Route: 048
     Dates: start: 20110428, end: 20110525
  26. MERCAPTOPURINE [Suspect]
     Dosage: 100 MG, QD (DAYS 1-28)
     Route: 048
     Dates: start: 20111121, end: 20120112
  27. DEXAMETHASONE [Suspect]
     Dosage: 4 MG, QD
     Route: 037
     Dates: start: 20100723, end: 20100723
  28. PREDNISONE TAB [Suspect]
     Dosage: 55 MG, QD, DAYS 0-6
     Route: 048
     Dates: start: 20110106, end: 20110202
  29. PREDNISONE TAB [Suspect]
     Dosage: 55 MG, QD, DAYS 0-6
     Route: 048
     Dates: start: 20110623, end: 20110720
  30. PREDNISONE TAB [Suspect]
     Dosage: 55 MG, QD, DAYS 0-6
     Route: 048
     Dates: start: 20110721, end: 20110817
  31. VINCRISTINE [Suspect]
     Dosage: 2 MG, QD, DAY 1 OF EVERY MONTH
     Route: 042
     Dates: start: 20110526, end: 20110526
  32. CYTARABINE [Suspect]
     Dosage: 80 MG, QD
     Route: 037
     Dates: start: 20100730, end: 20100730
  33. CYTARABINE [Suspect]
     Dosage: 80 MG, QD
     Route: 037
     Dates: start: 20101118, end: 20101118
  34. METHOTREXATE [Suspect]
     Dosage: 17.5 MG, QD ON DAY 7, 14, 21
     Route: 048
     Dates: start: 20110106, end: 20110202
  35. METHOTREXATE [Suspect]
     Dosage: 20 MG, QD ON DAY 7, 14, 21
     Route: 048
     Dates: start: 20110428, end: 20110525
  36. METHOTREXATE [Suspect]
     Dosage: 20 MG, QD ON DAY 7, 14, 21
     Route: 048
     Dates: start: 20110526, end: 20110622
  37. MERCAPTOPURINE [Suspect]
     Dosage: 75 MG, QD, DAYS 0-27
     Route: 048
     Dates: start: 20101209, end: 20110105
  38. MERCAPTOPURINE [Suspect]
     Dosage: 50 MG, QD, DAYS 0-27
     Route: 048
     Dates: start: 20110623, end: 20110720
  39. MERCAPTOPURINE [Suspect]
     Dosage: 50 MG, QD, DAYS 0-27
     Route: 048
     Dates: start: 20110915, end: 20111013
  40. DOXORUBICIN HCL [Suspect]
     Dosage: 62 MG, QD
     Route: 042
     Dates: start: 20100902, end: 20100902
  41. PREDNISONE TAB [Suspect]
     Dosage: 55 MG, QD, DAYS 0-6
     Route: 048
     Dates: start: 20101111, end: 20101208
  42. PREDNISONE TAB [Suspect]
     Dosage: 55 MG, QD, DAYS 0-6
     Route: 048
     Dates: start: 20101209, end: 20110105
  43. PREDNISONE TAB [Suspect]
     Dosage: 55 MG, QD, DAYS 0-6
     Route: 048
     Dates: start: 20110818, end: 20110914
  44. VINCRISTINE [Suspect]
     Dosage: 1 MG, QD
     Route: 042
     Dates: start: 20100819, end: 20100819
  45. VINCRISTINE [Suspect]
     Dosage: 2 MG, QD, DAY 1 OF EVERY MONTH
     Route: 042
     Dates: start: 20101209, end: 20101209
  46. VINCRISTINE [Suspect]
     Dosage: 2 MG, QD, DAY 1 OF EVERY MONTH
     Route: 042
     Dates: start: 20110721, end: 20110721
  47. VINCRISTINE [Suspect]
     Dosage: 2 MG, QD, DAY 1 OF EVERY MONTH
     Route: 042
     Dates: start: 20110818, end: 20110818
  48. CYTARABINE [Suspect]
     Dosage: 80 MG, QD
     Route: 037
     Dates: start: 20100723, end: 20100723
  49. CYTARABINE [Suspect]
     Dosage: 80 MG, QD
     Route: 037
     Dates: start: 20101209, end: 20101209
  50. METHOTREXATE [Suspect]
     Dosage: 25 MG, QD ON DAY 7, 14, 21
     Route: 048
     Dates: start: 20101111, end: 20101208
  51. PREDNISONE TAB [Suspect]
     Dosage: 55 MG, QD, DAYS 0-6
     Route: 048
     Dates: start: 20110526, end: 20110622
  52. VINCRISTINE [Suspect]
     Dosage: 1 MG, QD
     Route: 042
     Dates: start: 20100902, end: 20100902
  53. CYTARABINE [Suspect]
     Dosage: 80 MG, QD
     Route: 037
     Dates: start: 20100902, end: 20100902
  54. METHOTREXATE [Suspect]
     Dosage: 15 MG, QD (DAYS 1, 8 AND 15)
     Route: 048
     Dates: start: 20111014, end: 20111120
  55. ETOPOSIDE [Suspect]
     Dosage: 188 MG, QD
     Route: 042
     Dates: start: 20100627, end: 20100627
  56. DEXAMETHASONE [Suspect]
     Dosage: 4 MG, QD
     Route: 037
     Dates: start: 20100826, end: 20100826
  57. PEG-ASPARAGINASE [Suspect]
     Dosage: 1575 IU, QD
     Route: 042
     Dates: start: 20101010, end: 20101010
  58. DOXORUBICIN HCL [Suspect]
     Dosage: 66 MG, QD
     Route: 042
     Dates: start: 20100601, end: 20100601
  59. DOXORUBICIN HCL [Suspect]
     Dosage: 62 MG, QD
     Route: 042
     Dates: start: 20100818, end: 20100818
  60. VINCRISTINE [Suspect]
     Dosage: 1 MG, QD
     Route: 042
     Dates: start: 20100601, end: 20100601
  61. VINCRISTINE [Suspect]
     Dosage: 2 MG, QD, DAY 1 OF EVERY MONTH
     Route: 042
     Dates: start: 20110203, end: 20110203
  62. VINCRISTINE [Suspect]
     Dosage: 2 MG, QD, DAY 1 OF EVERY MONTH
     Route: 042
     Dates: start: 20110331, end: 20110331
  63. VINCRISTINE [Suspect]
     Dosage: 2 MG, QD, DAY 1 OF EVERY MONTH
     Route: 042
     Dates: start: 20110623, end: 20110623
  64. VINCRISTINE [Suspect]
     Dosage: 2 MG, QD, DAY 1 OF EVERY MONTH
     Route: 042
     Dates: start: 20110915, end: 20110915
  65. CYTARABINE [Suspect]
     Dosage: 80 MG, QD
     Route: 037
     Dates: start: 20100826, end: 20100826
  66. EVOLTRA [Suspect]
     Indication: ACUTE LYMPHOCYTIC LEUKAEMIA
     Dosage: 33 MG, QDX5
     Route: 042
     Dates: start: 20100511, end: 20100515
  67. METHOTREXATE [Suspect]
     Dosage: 775 MG, QD
     Route: 042
     Dates: start: 20100623, end: 20100623
  68. METHOTREXATE [Suspect]
     Dosage: 20 MG, QD ON DAY 7, 14, 21
     Route: 048
     Dates: start: 20110623, end: 20110720
  69. METHOTREXATE [Suspect]
     Dosage: 20 MG, QD (DAYS 1, 8 AND 15)
     Route: 048
     Dates: start: 20111121, end: 20120112
  70. MERCAPTOPURINE [Suspect]
     Dosage: 50 MG, QD, DAYS 0-27
     Route: 048
     Dates: start: 20110721, end: 20110817
  71. ETOPOSIDE [Suspect]
     Indication: ACUTE LYMPHOCYTIC LEUKAEMIA
     Dosage: 188 MG, QD
     Route: 042
     Dates: start: 20100620, end: 20100620
  72. DEXAMETHASONE [Suspect]
     Indication: ACUTE LYMPHOCYTIC LEUKAEMIA
     Dosage: 4 MG, QD
     Route: 037
     Dates: start: 20100608, end: 20100608
  73. DEXAMETHASONE [Suspect]
     Dosage: 4 MG, QD
     Route: 037
     Dates: start: 20101118, end: 20101118
  74. DEXAMETHASONE [Suspect]
     Dosage: 4 MG, QD
     Route: 037
     Dates: start: 20110203, end: 20110203
  75. PEG-ASPARAGINASE [Suspect]
     Indication: ACUTE LYMPHOCYTIC LEUKAEMIA
     Dosage: 1575 IU, QD
     Route: 042
     Dates: start: 20100925, end: 20100925
  76. PREDNISONE TAB [Suspect]
     Dosage: 55 MG, QD, DAYS 0-6
     Route: 048
     Dates: start: 20110203, end: 20110302
  77. CYTARABINE [Suspect]
     Dosage: 3140 MG, QD
     Route: 065
     Dates: start: 20100923, end: 20100924
  78. CYTARABINE [Suspect]
     Dosage: 80 MG, QD
     Route: 037
     Dates: start: 20110203, end: 20110203
  79. METHOTREXATE [Suspect]
     Dosage: 17.5 MG, QD ON DAY 7, 14, 21
     Route: 048
     Dates: start: 20101209, end: 20110105
  80. METHOTREXATE [Suspect]
     Dosage: 20 MG, QD ON DAY 7, 14, 21
     Route: 048
     Dates: start: 20110331, end: 20110427
  81. MERCAPTOPURINE [Suspect]
     Dosage: 90 MG, QD, DAYS 0-27
     Route: 048
     Dates: start: 20110106, end: 20110202
  82. MERCAPTOPURINE [Suspect]
     Dosage: 50 MG, QD, DAYS 0-27
     Route: 048
     Dates: start: 20110303, end: 20110330
  83. MERCAPTOPURINE [Suspect]
     Dosage: 50 MG, QD, DAYS 0-27
     Route: 048
     Dates: start: 20110526, end: 20110622
  84. DEXAMETHASONE [Suspect]
     Dosage: 4 MG, QD
     Route: 037
     Dates: start: 20100902, end: 20100902
  85. DEXAMETHASONE [Suspect]
     Dosage: 4 MG, QD
     Route: 037
     Dates: start: 20101209, end: 20101209
  86. DOXORUBICIN HCL [Suspect]
     Dosage: 62 MG, QD
     Route: 042
     Dates: start: 20100826, end: 20100826
  87. PREDNISONE TAB [Suspect]
     Indication: ACUTE LYMPHOCYTIC LEUKAEMIA
     Dosage: 50 MG, QD
     Route: 048
     Dates: start: 20100511, end: 20100517
  88. PREDNISONE TAB [Suspect]
     Dosage: 35 MG, QD
     Route: 048
     Dates: start: 20100518, end: 20100614
  89. PREDNISONE TAB [Suspect]
     Dosage: 55 MG, QD, DAYS 0-6
     Route: 048
     Dates: start: 20110915, end: 20111013
  90. VINCRISTINE [Suspect]
     Dosage: 2 MG, QD, DAY 1 OF EVERY MONTH
     Route: 042
     Dates: start: 20101111, end: 20101111
  91. VINCRISTINE [Suspect]
     Dosage: 2 MG, QD, DAY 1 OF EVERY MONTH
     Route: 042
     Dates: start: 20110303, end: 20110303
  92. CYTARABINE [Suspect]
     Dosage: 310 MG, QD
     Route: 042
     Dates: start: 20100627, end: 20100627

REACTIONS (2)
  - POST TRANSPLANT LYMPHOPROLIFERATIVE DISORDER [None]
  - PYREXIA [None]
